FAERS Safety Report 5509130-4 (Version None)
Quarter: 2007Q4

REPORT INFORMATION
  Report Type: 
  Country: None (occurrence: None)
  Receive Date: 20071107
  Receipt Date: 20071026
  Transmission Date: 20080405
  Serious: No
  Sender: FDA-Public Use
  Company Number: US-ELI_LILLY_AND_COMPANY-US200710006641

PATIENT
  Sex: Female

DRUGS (8)
  1. STRATTERA [Suspect]
     Indication: ATTENTION DEFICIT/HYPERACTIVITY DISORDER
     Dosage: 60 MG, UNK
     Dates: start: 20040101
  2. STRATTERA [Suspect]
     Dosage: 60 MG, EACH EVENING
     Dates: start: 20040101
  3. STRATTERA [Suspect]
     Dosage: 40 MG, EACH EVENING
     Dates: start: 20040101
  4. CRESTOR [Concomitant]
     Dates: end: 20070919
  5. LUPRON [Concomitant]
     Indication: ENDOMETRIOSIS
  6. NASAL SPRAY [Concomitant]
  7. DAILY VITAMINS [Concomitant]
     Route: 048
  8. VIVINOX [Concomitant]

REACTIONS (11)
  - DIZZINESS [None]
  - DRUG INEFFECTIVE [None]
  - FEELING ABNORMAL [None]
  - HEADACHE [None]
  - HEPATIC ENZYME INCREASED [None]
  - HOT FLUSH [None]
  - LOGORRHOEA [None]
  - NAUSEA [None]
  - NERVOUSNESS [None]
  - OVERDOSE [None]
  - PHARMACEUTICAL PRODUCT COMPLAINT [None]
